FAERS Safety Report 9455260 (Version 2)
Quarter: 2013Q3

REPORT INFORMATION
  Report Type: Spontaneous
  Country: US (occurrence: US)
  Receive Date: 20130813
  Receipt Date: 20130827
  Transmission Date: 20140515
  Serious: No
  Sender: FDA-Public Use
  Company Number: US-JNJFOC-20130801815

PATIENT
  Age: 35 Year
  Sex: Male
  Weight: 107.96 kg

DRUGS (17)
  1. DURAGESIC [Suspect]
     Indication: NEURALGIA
     Route: 062
     Dates: start: 20130730, end: 20130803
  2. DURAGESIC [Suspect]
     Indication: NEURALGIA
     Dosage: (50 + 25 UG/HR)
     Route: 062
     Dates: start: 20130717
  3. DURAGESIC [Suspect]
     Indication: NEURALGIA
     Route: 062
     Dates: start: 201005, end: 20130716
  4. TRUVADA [Concomitant]
     Indication: ACQUIRED IMMUNODEFICIENCY SYNDROME
     Route: 065
     Dates: start: 2005
  5. ATAZANAVIR SULFATE [Concomitant]
     Indication: ACQUIRED IMMUNODEFICIENCY SYNDROME
     Route: 065
     Dates: start: 2005
  6. NORVIR [Concomitant]
     Indication: ACQUIRED IMMUNODEFICIENCY SYNDROME
     Route: 065
     Dates: start: 2005
  7. NEURONTIN [Concomitant]
     Indication: NEUROPATHY PERIPHERAL
     Route: 065
     Dates: start: 2005
  8. PROZAC [Concomitant]
     Indication: DEPRESSION
     Route: 048
     Dates: start: 1996
  9. SYMBYAX [Concomitant]
     Indication: PSYCHOTIC DISORDER
     Route: 065
     Dates: start: 2012
  10. ASPIRIN [Concomitant]
     Indication: THROMBOSIS
     Route: 048
     Dates: start: 2012
  11. SEROQUEL [Concomitant]
     Indication: PSYCHOTIC DISORDER
     Route: 065
     Dates: start: 2012
  12. ALPRAZOLAM [Concomitant]
     Indication: PRODUCT USED FOR UNKNOWN INDICATION
     Route: 048
     Dates: start: 20130301
  13. NISTATIN [Concomitant]
     Indication: PRODUCT USED FOR UNKNOWN INDICATION
     Route: 062
     Dates: start: 20130802
  14. NISTATIN [Concomitant]
     Indication: PRODUCT USED FOR UNKNOWN INDICATION
     Route: 062
     Dates: start: 20130802
  15. ZOFRAN [Concomitant]
     Indication: NAUSEA
     Dosage: AS NEEDED
     Route: 048
     Dates: start: 20130724
  16. SEPTRA [Concomitant]
     Indication: PRODUCT USED FOR UNKNOWN INDICATION
     Route: 065
     Dates: start: 20130716
  17. BACITRACIN [Concomitant]
     Indication: PRODUCT USED FOR UNKNOWN INDICATION
     Route: 062
     Dates: start: 20130716

REACTIONS (7)
  - Drug ineffective [Recovered/Resolved]
  - Product quality issue [Unknown]
  - Wrong technique in drug usage process [Recovered/Resolved]
  - Incorrect dose administered [Not Recovered/Not Resolved]
  - Inappropriate schedule of drug administration [Recovered/Resolved]
  - Expired drug administered [Recovered/Resolved]
  - Drug dose omission [Unknown]
